FAERS Safety Report 21240775 (Version 1)
Quarter: 2022Q3

REPORT INFORMATION
  Report Type: Other
  Country: GT (occurrence: GT)
  Receive Date: 20220823
  Receipt Date: 20220823
  Transmission Date: 20221027
  Serious: Yes (Death, Life-Threatening)
  Sender: FDA-Public Use
  Company Number: GT-TOLMAR, INC.-22GT036111

PATIENT
  Sex: Male

DRUGS (2)
  1. ELIGARD [Suspect]
     Active Substance: LEUPROLIDE ACETATE
     Indication: Prostate cancer
     Dosage: 22.5 MILLIGRAM, Q 3 MONTH
     Route: 058
  2. ELIGARD [Suspect]
     Active Substance: LEUPROLIDE ACETATE
     Dosage: 22.5 MILLIGRAM, Q 3 MONTH
     Route: 058
     Dates: start: 20210910

REACTIONS (4)
  - Metastases to bone [Fatal]
  - Prostate cancer [Fatal]
  - Back pain [Unknown]
  - Walking disability [Unknown]
